FAERS Safety Report 4458183-3 (Version None)
Quarter: 2004Q3

REPORT INFORMATION
  Report Type: 
  Country: None (occurrence: None)
  Receive Date: 20040922
  Receipt Date: 20040908
  Transmission Date: 20050211
  Serious: Yes (Disabling)
  Sender: FDA-Public Use
  Company Number: 2004SE05057

PATIENT
  Age: 37 Year
  Sex: Female

DRUGS (2)
  1. SEROQUEL [Suspect]
     Indication: PARANOIA
     Dosage: 300 MG DAILY PO
     Route: 048
     Dates: start: 20030823, end: 20030903
  2. ZOLOFT [Concomitant]

REACTIONS (2)
  - DIZZINESS [None]
  - FATIGUE [None]
